FAERS Safety Report 4682794-3 (Version None)
Quarter: 2005Q2

REPORT INFORMATION
  Report Type: 
  Country: None (occurrence: None)
  Receive Date: 20050531
  Receipt Date: 20041221
  Transmission Date: 20051028
  Serious: Yes (Other)
  Sender: FDA-Public Use
  Company Number: 200419728US

PATIENT
  Sex: Male

DRUGS (2)
  1. LOVENOX [Suspect]
  2. HEPARIN [Concomitant]

REACTIONS (1)
  - SHUNT THROMBOSIS [None]
